FAERS Safety Report 25276733 (Version 2)
Quarter: 2025Q3

REPORT INFORMATION
  Report Type: Spontaneous
  Country: CN (occurrence: CN)
  Receive Date: 20250507
  Receipt Date: 20250803
  Transmission Date: 20251020
  Serious: Yes (Hospitalization, Other)
  Sender: ALEXION PHARMACEUTICALS
  Company Number: CN-ASTRAZENECA-202505CHN000451CN

PATIENT
  Age: 68 Year
  Sex: Male

DRUGS (1)
  1. BRILINTA [Suspect]
     Active Substance: TICAGRELOR
     Indication: Antiplatelet therapy
     Dosage: 90 MILLIGRAM, BID
     Dates: start: 20250311, end: 20250312

REACTIONS (3)
  - Adams-Stokes syndrome [Unknown]
  - Dyspnoea [Recovering/Resolving]
  - Sinus arrest [Recovering/Resolving]

NARRATIVE: CASE EVENT DATE: 20250311
